FAERS Safety Report 9402207 (Version 1)
Quarter: 2013Q3

REPORT INFORMATION
  Report Type: Spontaneous
  Country: US (occurrence: None)
  Receive Date: 20130712
  Receipt Date: 20130712
  Transmission Date: 20140515
  Serious: Yes (Hospitalization)
  Sender: FDA-Public Use
  Company Number: None

PATIENT
  Age: 43 Year
  Sex: Female
  Weight: 54.43 kg

DRUGS (2)
  1. PACLITAXEL [Suspect]
  2. CARBOPLATIN [Suspect]

REACTIONS (8)
  - Pain in extremity [None]
  - Pulse absent [None]
  - Supraventricular tachycardia [None]
  - Atrial fibrillation [None]
  - Atrial flutter [None]
  - Aortic embolus [None]
  - Leg amputation [None]
  - Blood glucose increased [None]
